FAERS Safety Report 9030157 (Version 1)
Quarter: 2013Q1

REPORT INFORMATION
  Report Type: Report from Study
  Country: FR (occurrence: FR)
  Receive Date: 20130125
  Receipt Date: 20130125
  Transmission Date: 20140127
  Serious: Yes (Death, Hospitalization)
  Sender: FDA-Public Use
  Company Number: FR-BRISTOL-MYERS SQUIBB COMPANY-17293481

PATIENT
  Age: 77 Year
  Sex: Male
  Weight: 89 kg

DRUGS (4)
  1. COUMADIN [Suspect]
     Indication: ARRHYTHMIA
     Dates: start: 20110408, end: 20110508
  2. RITUXIMAB [Concomitant]
     Indication: CHRONIC LYMPHOCYTIC LEUKAEMIA
     Dosage: LAST DOSE:02MAY2011
     Route: 042
     Dates: start: 20110308, end: 20110502
  3. CHLORAMBUCIL [Concomitant]
     Indication: CHRONIC LYMPHOCYTIC LEUKAEMIA
     Route: 048
     Dates: start: 20110308, end: 20110508
  4. CORDARONE [Concomitant]
     Indication: ARRHYTHMIA

REACTIONS (3)
  - Cardiac failure [Fatal]
  - Renal failure [Fatal]
  - Overdose [Not Recovered/Not Resolved]
